FAERS Safety Report 5025668-0 (Version None)
Quarter: 2006Q2

REPORT INFORMATION
  Report Type: 
  Country: None (occurrence: None)
  Receive Date: 20060614
  Receipt Date: 20060607
  Transmission Date: 20061013
  Serious: Yes (Hospitalization)
  Sender: FDA-Public Use
  Company Number: US-JNJFOC-20060601979

PATIENT
  Age: 60 Year
  Sex: Male

DRUGS (3)
  1. PEPCID AC [Suspect]
  2. PEPCID AC [Suspect]
     Indication: DRUG USE FOR UNKNOWN INDICATION
  3. UNSPECIFIED MEDICATIONS [Concomitant]

REACTIONS (5)
  - AMNESIA [None]
  - CHEST PAIN [None]
  - FALL [None]
  - LOSS OF CONSCIOUSNESS [None]
  - MENTAL DISORDER [None]
